FAERS Safety Report 21984455 (Version 1)
Quarter: 2023Q1

REPORT INFORMATION
  Report Type: Spontaneous
  Country: US (occurrence: None)
  Receive Date: 20230209
  Receipt Date: 20230209
  Transmission Date: 20230417
  Serious: Yes (Hospitalization)
  Sender: FDA-Public Use
  Company Number: None

PATIENT
  Sex: Female

DRUGS (1)
  1. COPAXONE [Suspect]
     Active Substance: GLATIRAMER ACETATE
     Dosage: 40 MG/ML SUBCUTANEOUS??INJECT 1 SYRINGE (40 MG) UNDER THE SKIN (SUBCUTANEOUS INJECTION) 3 TIMES WEEK
     Route: 058
     Dates: start: 20221122

REACTIONS (2)
  - Fall [None]
  - Concussion [None]
